FAERS Safety Report 5579969-8 (Version None)
Quarter: 2008Q1

REPORT INFORMATION
  Report Type: 
  Country: None (occurrence: None)
  Receive Date: 20080103
  Receipt Date: 20071226
  Transmission Date: 20080703
  Serious: Yes (Hospitalization)
  Sender: FDA-Public Use
  Company Number: US-JNJFOC-20071206221

PATIENT
  Sex: Male
  Weight: 107.96 kg

DRUGS (22)
  1. ETRAVIRINE [Suspect]
     Indication: HIV INFECTION
     Dosage: TEMPORARY STOP
     Route: 048
  2. TMC114 [Suspect]
     Route: 048
  3. TMC114 [Suspect]
     Indication: HIV INFECTION
     Dosage: TEMPORARY STOP
     Route: 048
  4. NORVIR [Suspect]
     Indication: HIV INFECTION
     Route: 048
  5. TRUVADA [Concomitant]
     Indication: HIV INFECTION
     Route: 048
  6. NEXIUM [Concomitant]
     Indication: GASTROOESOPHAGEAL REFLUX DISEASE
     Dosage: STARTED PRE-TRIAL
     Route: 048
  7. TRICOR [Concomitant]
     Indication: HYPERLIPIDAEMIA
     Dosage: STARTED PRE-TRIAL
     Route: 048
  8. UNASYN [Concomitant]
     Indication: STAPHYLOCOCCAL INFECTION
     Dosage: STARTED PRE-TRIAL
     Route: 058
  9. BACTRIM DS [Concomitant]
     Indication: ANTIFUNGAL PROPHYLAXIS
     Dosage: STARTED PRE-TRIAL
     Route: 048
  10. FLUCONAZOLE [Concomitant]
     Indication: ANTIFUNGAL PROPHYLAXIS
     Dosage: STARTED PRE-TRIAL
     Route: 048
  11. ZITHROMAX [Concomitant]
     Indication: OPPORTUNISTIC INFECTION PROPHYLAXIS
     Dosage: STARTED PRE-TRIAL
     Route: 048
  12. OXYCONTIN [Concomitant]
     Indication: NEUROPATHY PERIPHERAL
     Dosage: STARTED PRE-TRIAL
     Route: 048
  13. PROZAC [Concomitant]
     Indication: DEPRESSION
     Dosage: STARTED PRE-TRIAL
     Route: 048
  14. BUSPAR [Concomitant]
     Indication: DEPRESSION
     Dosage: STARTED PRE-TRIAL
     Route: 048
  15. AMBIEN [Concomitant]
     Indication: DEPRESSION
     Dosage: STARTED PRE-TRIAL
     Route: 048
  16. METFORMIN [Concomitant]
     Indication: DIABETES MELLITUS
     Route: 048
  17. NOVALOG INSULIN [Concomitant]
     Indication: DIABETES MELLITUS
     Route: 058
  18. GLIMEPIRIDE [Concomitant]
     Indication: DIABETES MELLITUS
     Route: 048
  19. NIASPAN [Concomitant]
     Indication: HYPERLIPIDAEMIA
     Route: 048
  20. LOPID [Concomitant]
     Indication: HYPERLIPIDAEMIA
     Route: 048
  21. ELAVIL [Concomitant]
     Indication: NEUROPATHY PERIPHERAL
     Route: 048
  22. NEURONTIN [Concomitant]
     Indication: NEUROPATHY PERIPHERAL
     Route: 048

REACTIONS (1)
  - PANCREATITIS [None]
